FAERS Safety Report 24332889 (Version 3)
Quarter: 2025Q3

REPORT INFORMATION
  Report Type: Spontaneous
  Country: EU (occurrence: EU)
  Receive Date: 20240918
  Receipt Date: 20250814
  Transmission Date: 20251020
  Serious: Yes (Life-Threatening, Hospitalization)
  Sender: CSL BEHRING
  Company Number: None

PATIENT
  Age: 17 Year
  Sex: Female
  Weight: 75 kg

DRUGS (8)
  1. PRIVIGEN [Suspect]
     Active Substance: HUMAN IMMUNOGLOBULIN G
     Indication: Immune thrombocytopenia
     Route: 042
     Dates: start: 20240901, end: 20240901
  2. PRIVIGEN [Suspect]
     Active Substance: HUMAN IMMUNOGLOBULIN G
     Route: 042
     Dates: start: 20240901, end: 20240901
  3. PRIVIGEN [Suspect]
     Active Substance: HUMAN IMMUNOGLOBULIN G
     Route: 042
     Dates: start: 20240904, end: 20240904
  4. PRIVIGEN [Suspect]
     Active Substance: HUMAN IMMUNOGLOBULIN G
     Route: 042
     Dates: start: 20240904, end: 20240904
  5. ONDANSETRON [Concomitant]
     Active Substance: ONDANSETRON
  6. TRAMADOL HYDROCHLORIDE [Concomitant]
     Active Substance: TRAMADOL HYDROCHLORIDE
  7. DOLIPRANE [Concomitant]
     Active Substance: ACETAMINOPHEN
  8. TRANEXAMIC ACID [Concomitant]
     Active Substance: TRANEXAMIC ACID

REACTIONS (5)
  - Acute kidney injury [Recovered/Resolved]
  - Vomiting [Recovered/Resolved]
  - Pruritus [Recovered/Resolved]
  - Erythema [Recovered/Resolved]
  - Face oedema [Recovered/Resolved]

NARRATIVE: CASE EVENT DATE: 20240904
